FAERS Safety Report 5268049-7 (Version None)
Quarter: 2007Q1

REPORT INFORMATION
  Report Type: 
  Country: None (occurrence: None)
  Receive Date: 20070316
  Receipt Date: 20070316
  Transmission Date: 20070707
  Serious: Yes (Life-Threatening, Hospitalization)
  Sender: FDA-Public Use
  Company Number: None

PATIENT
  Sex: Male
  Weight: 89.6 kg

DRUGS (4)
  1. IBUPROFEN [Suspect]
     Indication: BACK PAIN
     Dosage: ^HIGH DOSE^ PO  3-4 WEEKS
     Route: 048
  2. IBUPROFEN [Suspect]
     Indication: MUSCLE SPASMS
     Dosage: ^HIGH DOSE^ PO  3-4 WEEKS
     Route: 048
  3. ASPIRIN [Suspect]
     Indication: CORONARY ARTERY DISEASE
     Dosage: 81 MG DAILY PO
     Route: 048
     Dates: start: 20050501
  4. ASPIRIN [Suspect]
     Indication: PROPHYLAXIS
     Dosage: 81 MG DAILY PO
     Route: 048
     Dates: start: 20050501

REACTIONS (2)
  - LOSS OF CONSCIOUSNESS [None]
  - UPPER GASTROINTESTINAL HAEMORRHAGE [None]
